FAERS Safety Report 19882564 (Version 1)
Quarter: 2021Q3

REPORT INFORMATION
  Report Type: Spontaneous
  Country: US (occurrence: US)
  Receive Date: 20210924
  Receipt Date: 20210924
  Transmission Date: 20211014
  Serious: Yes (Other)
  Sender: FDA-Public Use
  Company Number: US-GILEAD-2021-0549902

PATIENT
  Age: 79 Year
  Sex: Female
  Weight: 57.2 kg

DRUGS (1)
  1. YESCARTA [Suspect]
     Active Substance: AXICABTAGENE CILOLEUCEL
     Indication: FOLLICULAR LYMPHOMA
     Dosage: SINGLE DOSE OF UNKNOWN VOLUME
     Route: 042
     Dates: start: 20210707, end: 20210707

REACTIONS (6)
  - Ileus [Unknown]
  - Cytokine release syndrome [Unknown]
  - Oliguria [Unknown]
  - Pleural effusion [Unknown]
  - Immune effector cell-associated neurotoxicity syndrome [Recovered/Resolved]
  - Acute kidney injury [Unknown]

NARRATIVE: CASE EVENT DATE: 20210711
